FAERS Safety Report 5710668-5 (Version None)
Quarter: 2008Q2

REPORT INFORMATION
  Report Type: 
  Country: None (occurrence: None)
  Receive Date: 20080415
  Receipt Date: 20080404
  Transmission Date: 20081010
  Serious: Yes (Hospitalization)
  Sender: FDA-Public Use
  Company Number: 2008SP005477

PATIENT
  Age: 78 Year
  Sex: Male
  Weight: 65 kg

DRUGS (7)
  1. VIRAFERONPEG [Suspect]
     Indication: HEPATITIS C
     Dosage: 0.5 MCG/KG; QW;
     Dates: start: 20080116
  2. BLINDED PEGINTERFERON ALFA-2B (S-P) [Suspect]
     Indication: HEPATITIS C
     Dosage: 800 MG; QD;
     Dates: start: 20080116
  3. GLUCAGON [Concomitant]
  4. STAGID [Concomitant]
  5. DIAMICRON [Concomitant]
  6. TRIATEC [Concomitant]
  7. ZANIDIP [Concomitant]

REACTIONS (4)
  - ANAL POLYP [None]
  - COLON ADENOMA [None]
  - DIARRHOEA [None]
  - DYSPLASIA [None]
